FAERS Safety Report 11842214 (Version 1)
Quarter: 2015Q4

REPORT INFORMATION
  Report Type: Spontaneous
  Country: US (occurrence: US)
  Receive Date: 20151216
  Receipt Date: 20151216
  Transmission Date: 20160305
  Serious: No
  Sender: FDA-Public Use
  Company Number: US-RB-073819-15

PATIENT
  Age: 39 Year
  Sex: Male
  Weight: 104.3 kg

DRUGS (1)
  1. DELSYM [Suspect]
     Active Substance: DEXTROMETHORPHAN
     Indication: PRODUCT USED FOR UNKNOWN INDICATION
     Dosage: 5ML. TRIED 4 TIMES,BID
     Route: 065
     Dates: start: 20150210

REACTIONS (1)
  - Ejaculation failure [Recovered/Resolved]
